FAERS Safety Report 16528369 (Version 1)
Quarter: 2019Q3

REPORT INFORMATION
  Report Type: Spontaneous
  Country: US (occurrence: US)
  Receive Date: 20190704
  Receipt Date: 20190704
  Transmission Date: 20191004
  Serious: No
  Sender: FDA-Public Use
  Company Number: US-GW PHARMA-201904USGW1209

PATIENT

DRUGS (4)
  1. EPIDIOLEX [Suspect]
     Active Substance: CANNABIDIOL
     Dosage: 2 MG/KG/DAY
     Route: 048
  2. CLOBAZAM. [Suspect]
     Active Substance: CLOBAZAM
     Indication: PRODUCT USED FOR UNKNOWN INDICATION
     Dosage: 70 MILLIGRAM, QD
     Route: 065
  3. EPIDIOLEX [Suspect]
     Active Substance: CANNABIDIOL
     Indication: EPILEPSY
     Dosage: 8 MG/KG/DAY
     Route: 048
  4. CLOBAZAM. [Suspect]
     Active Substance: CLOBAZAM
     Dosage: 45 MILLIGRAM, QD
     Route: 065

REACTIONS (2)
  - Sedation [Unknown]
  - Diarrhoea [Recovering/Resolving]
